FAERS Safety Report 9401163 (Version 1)
Quarter: 2013Q3

REPORT INFORMATION
  Report Type: Spontaneous
  Country: GB (occurrence: GB)
  Receive Date: 20130715
  Receipt Date: 20130715
  Transmission Date: 20140515
  Serious: Yes (Other)
  Sender: FDA-Public Use
  Company Number: GB-TEVA-417103ISR

PATIENT
  Sex: Female

DRUGS (4)
  1. AMITRIPTYLINE [Suspect]
     Indication: NEURALGIA
     Dosage: 20 MILLIGRAM DAILY;
     Route: 048
  2. PLAQUENIL [Interacting]
     Indication: SYSTEMIC LUPUS ERYTHEMATOSUS
     Dosage: 400 MILLIGRAM DAILY;
     Route: 048
  3. AMLODIPINE [Concomitant]
     Indication: BLOOD PRESSURE
  4. CITALOPRAM [Concomitant]
     Indication: ANXIETY

REACTIONS (4)
  - Electrocardiogram QT prolonged [Unknown]
  - Drug interaction [Unknown]
  - Chest discomfort [Unknown]
  - Dyspnoea [Unknown]
